FAERS Safety Report 23361892 (Version 2)
Quarter: 2024Q3

REPORT INFORMATION
  Report Type: Report from Study
  Country: US (occurrence: US)
  Receive Date: 20240103
  Receipt Date: 20240830
  Transmission Date: 20241017
  Serious: No
  Sender: NOVARTIS
  Company Number: US-SANDOZ-SDZ2023US022084

PATIENT
  Age: 54 Year
  Sex: Female

DRUGS (12)
  1. LISINOPRIL [Suspect]
     Active Substance: LISINOPRIL
     Indication: Product used for unknown indication
     Dosage: UNK
     Route: 065
     Dates: start: 202304
  2. ENTRESTO [Suspect]
     Active Substance: SACUBITRIL\VALSARTAN
     Indication: Product used for unknown indication
     Dosage: 1 DOSAGE FORM, BID
     Route: 065
     Dates: start: 20230626
  3. ENTRESTO [Suspect]
     Active Substance: SACUBITRIL\VALSARTAN
     Dosage: 1 DOSAGE FORM, BID
     Route: 048
     Dates: start: 20230919
  4. LOPRESSOR [Suspect]
     Active Substance: METOPROLOL TARTRATE
     Indication: Product used for unknown indication
     Dosage: UNK
     Route: 065
     Dates: start: 202308
  5. LOPRESSOR [Suspect]
     Active Substance: METOPROLOL TARTRATE
     Dosage: 12.5 MG, BID
     Route: 048
     Dates: start: 20230821, end: 20230920
  6. VITAMIN B12 [Concomitant]
     Active Substance: CYANOCOBALAMIN
     Indication: Product used for unknown indication
     Dosage: 1 DOSAGE FORM, QD
     Route: 048
  7. VITAMINS [Concomitant]
     Active Substance: VITAMINS
     Indication: Product used for unknown indication
     Dosage: 1 DOSAGE FORM, QD
     Route: 048
  8. JARDIANCE [Concomitant]
     Active Substance: EMPAGLIFLOZIN
     Indication: Product used for unknown indication
     Dosage: 1 DOSAGE FORM, QD
     Route: 048
     Dates: start: 20230505, end: 20230728
  9. INSPRA [Concomitant]
     Active Substance: EPLERENONE
     Indication: Product used for unknown indication
     Dosage: 1 DOSAGE FORM, QD
     Route: 048
     Dates: start: 20220721, end: 20231007
  10. ZESTRIL [Concomitant]
     Active Substance: LISINOPRIL
     Indication: Product used for unknown indication
     Dosage: 1 DOSAGE FORM, QD
     Route: 048
     Dates: start: 20221228, end: 20230622
  11. MAGNESIUM [Concomitant]
     Active Substance: MAGNESIUM
     Indication: Product used for unknown indication
     Dosage: UNK
     Route: 048
     Dates: end: 20230308
  12. CAL-MAG [Concomitant]
     Indication: Product used for unknown indication
     Dosage: UNK
     Route: 048

REACTIONS (5)
  - Chest discomfort [Recovering/Resolving]
  - Weight increased [Not Recovered/Not Resolved]
  - Heart rate decreased [Unknown]
  - Fatigue [Not Recovered/Not Resolved]
  - Weight fluctuation [Unknown]

NARRATIVE: CASE EVENT DATE: 20231001
